FAERS Safety Report 5794776-9 (Version None)
Quarter: 2008Q2

REPORT INFORMATION
  Report Type: 
  Country: None (occurrence: None)
  Receive Date: 20080630
  Receipt Date: 20080204
  Transmission Date: 20081010
  Serious: Yes (Other)
  Sender: FDA-Public Use
  Company Number: DK-PFIZER INC-2007035391

PATIENT
  Sex: Female
  Weight: 55.5 kg

DRUGS (8)
  1. CHANTIX [Suspect]
     Indication: SMOKING CESSATION THERAPY
     Route: 048
     Dates: start: 20070201, end: 20070401
  2. INSULIN [Concomitant]
     Indication: TYPE 1 DIABETES MELLITUS
     Route: 051
  3. NEXIUM [Concomitant]
     Indication: GASTRITIS
     Dosage: DAILY DOSE:40MG
     Route: 048
     Dates: start: 20020101
  4. CORODIL [Concomitant]
     Indication: HYPERTENSION
     Dosage: DAILY DOSE:5MG
     Route: 048
     Dates: start: 20040101
  5. SPIROCORT [Concomitant]
     Indication: ASTHMA
     Route: 055
  6. ACTRAPID [Concomitant]
     Route: 042
  7. TRIOBE [Concomitant]
     Route: 048
  8. INSULIN DETEMIR [Concomitant]

REACTIONS (13)
  - ABDOMINAL DISCOMFORT [None]
  - ABNORMAL DREAMS [None]
  - CHEST PAIN [None]
  - DIARRHOEA [None]
  - DYSPHONIA [None]
  - DYSPNOEA [None]
  - HEADACHE [None]
  - HYPERHIDROSIS [None]
  - HYPOGLYCAEMIA [None]
  - LACRIMATION INCREASED [None]
  - MUSCULOSKELETAL CHEST PAIN [None]
  - NAUSEA [None]
  - PALPITATIONS [None]
